FAERS Safety Report 5155952-1 (Version None)
Quarter: 2006Q4

REPORT INFORMATION
  Report Type: 
  Country: None (occurrence: None)
  Receive Date: 20061122
  Receipt Date: 20060418
  Transmission Date: 20070319
  Serious: Yes (Hospitalization)
  Sender: FDA-Public Use
  Company Number: US-BAYER-200612610BWH

PATIENT
  Age: 81 Year
  Sex: Male
  Weight: 69 kg

DRUGS (19)
  1. NEXAVAR [Suspect]
     Indication: METASTATIC RENAL CELL CARCINOMA
     Dosage: TOTAL DAILY DOSE: 800 MG  UNIT DOSE: 200 MG
     Route: 048
     Dates: start: 20050914, end: 20060203
  2. NEXAVAR [Suspect]
     Dosage: TOTAL DAILY DOSE: 800 MG  UNIT DOSE: 200 MG
     Route: 048
     Dates: start: 20060203, end: 20060406
  3. TENORMIN [Concomitant]
     Indication: HYPERTENSION
     Route: 048
     Dates: start: 20020101
  4. FLOMAX [Concomitant]
     Indication: URINARY TRACT OBSTRUCTION
     Route: 048
     Dates: start: 20020101
  5. ADULT CHEWABLE ASPIRIN [Concomitant]
     Indication: PROPHYLAXIS
     Route: 048
     Dates: start: 20050101
  6. LOTENSIN [Concomitant]
     Indication: HYPERTENSION
     Route: 048
     Dates: start: 20060101
  7. NORVASC [Concomitant]
     Indication: HYPERTENSION
     Route: 048
     Dates: start: 20060107
  8. CALCIUM [Concomitant]
     Indication: HYPOCALCAEMIA
     Route: 048
     Dates: start: 20060406
  9. MAG-OX [Concomitant]
     Indication: HYPOMAGNESAEMIA
     Route: 048
     Dates: start: 20060406
  10. HYDROCHLOROTHIAZIDE [Concomitant]
     Indication: HYPERTENSION
     Route: 048
     Dates: start: 20020101
  11. SENIOR VITAMIN [Concomitant]
     Indication: MEDICAL DIET
     Route: 048
     Dates: start: 19850101
  12. ASCORBIC ACID [Concomitant]
     Indication: MEDICAL DIET
     Route: 048
     Dates: start: 19950101
  13. COD LIVER OIL [Concomitant]
     Indication: MEDICAL DIET
     Route: 048
     Dates: start: 19950101
  14. JUVENON [Concomitant]
     Route: 048
  15. IMODIUM [Concomitant]
     Indication: DIARRHOEA
     Route: 048
     Dates: start: 20051209
  16. ALEVE [Concomitant]
  17. MOTRIN [Concomitant]
  18. AGGRENOX [Concomitant]
     Indication: CEREBROVASCULAR ACCIDENT PROPHYLAXIS
     Route: 048
     Dates: start: 20060420
  19. AGGRENOX [Concomitant]

REACTIONS (11)
  - ASTHENIA [None]
  - CEREBRAL ATROPHY [None]
  - DIARRHOEA [None]
  - DIZZINESS [None]
  - DYSARTHRIA [None]
  - DYSGEUSIA [None]
  - FLUSHING [None]
  - HYPOGLYCAEMIA [None]
  - HYPOMAGNESAEMIA [None]
  - MUSCULAR WEAKNESS [None]
  - TRANSIENT ISCHAEMIC ATTACK [None]
